FAERS Safety Report 9474610 (Version 1)
Quarter: 2013Q3

REPORT INFORMATION
  Report Type: Spontaneous
  Country: KZ (occurrence: KZ)
  Receive Date: 20130823
  Receipt Date: 20130823
  Transmission Date: 20140515
  Serious: Yes (Hospitalization)
  Sender: FDA-Public Use
  Company Number: KZ-VIIV HEALTHCARE LIMITED-B0917399A

PATIENT
  Age: 45 Year
  Sex: Female
  Weight: 75 kg

DRUGS (3)
  1. ZIAGEN [Suspect]
     Indication: HIV INFECTION
     Dosage: 600MG PER DAY
     Route: 048
     Dates: start: 20110714, end: 20110821
  2. LAMIVUDINE-HIV [Concomitant]
     Indication: HIV INFECTION
     Dates: start: 20110714, end: 20110821
  3. STAVUDINE [Concomitant]
     Indication: HIV INFECTION
     Dates: start: 20110714, end: 20110821

REACTIONS (2)
  - Angioedema [Recovered/Resolved]
  - Urticaria [Recovered/Resolved]
